FAERS Safety Report 20617432 (Version 1)
Quarter: 2022Q1

REPORT INFORMATION
  Report Type: Spontaneous
  Country: US (occurrence: None)
  Receive Date: 20220319
  Receipt Date: 20220319
  Transmission Date: 20220423
  Serious: Yes (Hospitalization)
  Sender: FDA-Public Use
  Company Number: None

PATIENT
  Age: 51 Year
  Sex: Female
  Weight: 109.35 kg

DRUGS (2)
  1. IBUPROFEN [Suspect]
     Active Substance: IBUPROFEN
  2. MOTRIN [Suspect]
     Active Substance: IBUPROFEN

REACTIONS (6)
  - Pancreatitis [None]
  - Back pain [None]
  - Burning sensation [None]
  - Pain [None]
  - Dyspepsia [None]
  - Abdominal pain [None]

NARRATIVE: CASE EVENT DATE: 20220305
